FAERS Safety Report 25629354 (Version 1)
Quarter: 2025Q3

REPORT INFORMATION
  Report Type: Spontaneous
  Country: US (occurrence: None)
  Receive Date: 20250731
  Receipt Date: 20250731
  Transmission Date: 20251020
  Serious: Yes (Other)
  Sender: FDA-CTU
  Company Number: None

PATIENT
  Age: 43 Year
  Sex: Female
  Weight: 78.3 kg

DRUGS (2)
  1. CABENUVA [Suspect]
     Active Substance: CABOTEGRAVIR\RILPIVIRINE
     Indication: HIV test
     Route: 030
     Dates: start: 20231220
  2. CABENUVA [Concomitant]
     Active Substance: CABOTEGRAVIR\RILPIVIRINE
     Dates: start: 20231220

REACTIONS (5)
  - Pain [None]
  - Hypoaesthesia [None]
  - Paraesthesia [None]
  - Back pain [None]
  - Weight bearing difficulty [None]

NARRATIVE: CASE EVENT DATE: 20250721
